FAERS Safety Report 6426471-7 (Version None)
Quarter: 2009Q4

REPORT INFORMATION
  Report Type: 
  Country: None (occurrence: None)
  Receive Date: 20091103
  Receipt Date: 20091103
  Transmission Date: 20100525
  Serious: No
  Sender: FDA-Public Use
  Company Number: None

PATIENT
  Age: 86 Year
  Sex: Female

DRUGS (1)
  1. WARFARIN [Suspect]
     Dosage: 285 MG EVERY DAY PO
     Route: 048
     Dates: start: 20080310

REACTIONS (2)
  - EPISTAXIS [None]
  - HYPERTENSION [None]
